FAERS Safety Report 4579624-7 (Version None)
Quarter: 2005Q1

REPORT INFORMATION
  Report Type: 
  Country: None (occurrence: None)
  Receive Date: 20050210
  Receipt Date: 20040715
  Transmission Date: 20050727
  Serious: Yes (Hospitalization)
  Sender: FDA-Public Use
  Company Number: WAES 0502USA00088

PATIENT
  Age: 85 Year
  Sex: Female

DRUGS (7)
  1. COZAAR [Suspect]
     Indication: HYPERTENSION
     Dosage: 50 MG/DAILY, PO
     Route: 048
     Dates: start: 20010901
  2. BUFFERIN [Concomitant]
  3. MEVALOTIN [Concomitant]
  4. MOBIC [Concomitant]
  5. NIVADIL [Concomitant]
  6. UROSODIOL [Concomitant]
  7. ZOLPIDEM TARTRATE [Concomitant]

REACTIONS (2)
  - HEMIPARESIS [None]
  - TRANSIENT ISCHAEMIC ATTACK [None]
